FAERS Safety Report 7328419-X (Version None)
Quarter: 2011Q1

REPORT INFORMATION
  Report Type: 
  Country: None (occurrence: None)
  Receive Date: 20110223
  Receipt Date: 20110214
  Transmission Date: 20110831
  Serious: Yes (Life-Threatening, Hospitalization, Other)
  Sender: FDA-Public Use
  Company Number: TAP2002Q01887

PATIENT
  Age: 46 Year
  Sex: Female
  Weight: 77.1115 kg

DRUGS (3)
  1. CALCIUM CARBONATE [Suspect]
     Indication: THYROIDECTOMY
     Dosage: BETWEEN MEALS, PER ORAL
     Route: 048
  2. THYROID HORMONE REPLACEMENT (THYROID HORMONES) [Concomitant]
  3. PREVACID [Suspect]
     Indication: GASTROOESOPHAGEAL REFLUX DISEASE
     Dosage: 30 MG, 2 IN 1 D

REACTIONS (8)
  - CONVULSION [None]
  - HYPOCALCAEMIA [None]
  - TETANY [None]
  - DRUG INTERACTION [None]
  - HYPOAESTHESIA [None]
  - CHEST DISCOMFORT [None]
  - MUSCLE SPASMS [None]
  - BLOOD PARATHYROID HORMONE DECREASED [None]
